FAERS Safety Report 4968304-1 (Version None)
Quarter: 2006Q1

REPORT INFORMATION
  Report Type: 
  Country: None (occurrence: None)
  Receive Date: 20060201
  Receipt Date: 20051223
  Transmission Date: 20060701
  Serious: No
  Sender: FDA-Public Use
  Company Number: 2005PV006164

PATIENT
  Age: 49 Year
  Sex: Female

DRUGS (3)
  1. BYETTA [Suspect]
     Dosage: 10 MCG;SC, 5 MCG;SC
     Route: 058
     Dates: start: 20051003, end: 20050101
  2. BYETTA [Suspect]
     Dosage: 10 MCG;SC, 5 MCG;SC
     Route: 058
     Dates: start: 20050101
  3. GLUCOPHAGE [Concomitant]

REACTIONS (4)
  - BLOOD GLUCOSE DECREASED [None]
  - DECREASED APPETITE [None]
  - FEELING DRUNK [None]
  - WEIGHT DECREASED [None]
